FAERS Safety Report 8959987 (Version 3)
Quarter: 2013Q2

REPORT INFORMATION
  Report Type: Spontaneous
  Country: JP (occurrence: JP)
  Receive Date: 20121212
  Receipt Date: 20130404
  Transmission Date: 20140414
  Serious: Yes (Hospitalization)
  Sender: FDA-Public Use
  Company Number: JP-JNJFOC-20121201897

PATIENT
  Age: 64 Year
  Sex: Male
  Weight: 75 kg

DRUGS (12)
  1. REMICADE [Suspect]
     Indication: PSORIATIC ARTHROPATHY
     Dosage: EIGHTH DOSE
     Route: 042
     Dates: start: 20120830
  2. REMICADE [Suspect]
     Indication: PSORIATIC ARTHROPATHY
     Route: 042
     Dates: start: 20111222
  3. REMICADE [Suspect]
     Indication: PSORIATIC ARTHROPATHY
     Route: 042
     Dates: start: 20111125
  4. REMICADE [Suspect]
     Indication: PSORIATIC ARTHROPATHY
     Dosage: 1ST DOSE
     Route: 042
     Dates: start: 20111111
  5. URIEF [Concomitant]
     Indication: BENIGN PROSTATIC HYPERPLASIA
     Dosage: 8 MG, 4 MG
     Route: 048
  6. ALESION [Concomitant]
     Indication: PSORIASIS
  7. SALOBEL [Concomitant]
     Indication: HYPERURICAEMIA
     Dosage: 200 MG, 100 MG
     Route: 048
  8. SELBEX [Concomitant]
     Indication: GASTRITIS
     Dosage: 1.5G, 0.5G
     Route: 048
  9. METHYCOBAL [Concomitant]
     Indication: BACK PAIN
     Dosage: 1500 MCG, 500 MCG
     Route: 048
  10. LOXONIN [Concomitant]
     Indication: BACK PAIN
     Dosage: 180 MG, 60 MG
     Route: 048
  11. TERNELIN [Concomitant]
     Indication: BACK PAIN
     Dosage: 3 MG, 1 MG
     Route: 048
  12. TRINOSIN [Concomitant]
     Indication: GASTRITIS
     Dosage: 9G, 3G
     Route: 048

REACTIONS (1)
  - Bladder cancer [Recovered/Resolved]
